FAERS Safety Report 4470201-5 (Version None)
Quarter: 2004Q4

REPORT INFORMATION
  Report Type: 
  Country: None (occurrence: None)
  Receive Date: 20041008
  Receipt Date: 20040928
  Transmission Date: 20050328
  Serious: Yes (Other)
  Sender: FDA-Public Use
  Company Number: US-MERCK-0409USA02467

PATIENT
  Age: 91 Year
  Sex: Female

DRUGS (7)
  1. FOSAMAX [Suspect]
     Indication: OSTEOPOROSIS PROPHYLAXIS
     Route: 048
  2. ASPIRIN [Concomitant]
     Route: 065
  3. PLAVIX [Concomitant]
     Route: 065
  4. HYDROCHLOROTHIAZIDE AND TRIAMTERENE [Concomitant]
     Route: 065
  5. SYNTHROID [Concomitant]
     Route: 065
  6. ADALAT [Concomitant]
     Route: 065
  7. ZOCOR [Concomitant]
     Route: 048

REACTIONS (3)
  - CEREBROVASCULAR ACCIDENT [None]
  - MEDICATION ERROR [None]
  - TREATMENT NONCOMPLIANCE [None]
